FAERS Safety Report 10880655 (Version 1)
Quarter: 2015Q1

REPORT INFORMATION
  Report Type: Report from Study
  Country: US (occurrence: US)
  Receive Date: 20150303
  Receipt Date: 20150303
  Transmission Date: 20150721
  Serious: Yes (Hospitalization)
  Sender: FDA-Public Use
  Company Number: US-ROCHE-1544526

PATIENT
  Age: 74 Year
  Sex: Female

DRUGS (4)
  1. ADALIMUMAB [Suspect]
     Active Substance: ADALIMUMAB
     Indication: ANKYLOSING SPONDYLITIS
     Route: 065
     Dates: start: 201409, end: 20150101
  2. PREDNISOLONE. [Concomitant]
     Active Substance: PREDNISOLONE
  3. LISINOPRIL. [Concomitant]
     Active Substance: LISINOPRIL
  4. OSELTAMIVIR [Suspect]
     Active Substance: OSELTAMIVIR
     Indication: VOMITING
     Route: 065

REACTIONS (3)
  - Influenza [Recovered/Resolved]
  - Vomiting [Recovered/Resolved]
  - Delirium [Recovered/Resolved]

NARRATIVE: CASE EVENT DATE: 201501
